FAERS Safety Report 15631200 (Version 1)
Quarter: 2018Q4

REPORT INFORMATION
  Report Type: Report from Study
  Country: US (occurrence: US)
  Receive Date: 20181119
  Receipt Date: 20181119
  Transmission Date: 20190205
  Serious: No
  Sender: FDA-Public Use
  Company Number: PHEH2018US047957

PATIENT
  Sex: Female

DRUGS (1)
  1. ILARIS [Suspect]
     Active Substance: CANAKINUMAB
     Indication: STILL^S DISEASE
     Route: 058

REACTIONS (6)
  - Disease recurrence [Unknown]
  - Fatigue [Unknown]
  - Influenza [Unknown]
  - Pyrexia [Unknown]
  - Arthralgia [Unknown]
  - Rash erythematous [Unknown]
